FAERS Safety Report 4713889-3 (Version None)
Quarter: 2005Q3

REPORT INFORMATION
  Report Type: 
  Country: None (occurrence: None)
  Receive Date: 20050712
  Receipt Date: 20050628
  Transmission Date: 20060218
  Serious: Yes (Other)
  Sender: FDA-Public Use
  Company Number: USA050599317

PATIENT
  Age: 75 Year
  Sex: Male
  Weight: 98 kg

DRUGS (13)
  1. CYMBALTA [Suspect]
     Indication: DIABETIC NEUROPATHY
     Dosage: 30 MG DAY
     Dates: start: 20050324, end: 20050404
  2. BUMEX [Concomitant]
  3. PROTONIX [Concomitant]
  4. LISINOPRIL (LISINOPRIL /00894001/) [Concomitant]
  5. ZOCOR [Concomitant]
  6. COUMADIN [Concomitant]
  7. ALDACTONE [Concomitant]
  8. LEVOXYL [Concomitant]
  9. GLYBURIDE [Concomitant]
  10. AMIODARONE [Concomitant]
  11. COREG [Concomitant]
  12. ACETYLSALICYLIC ACID SRT [Concomitant]
  13. ALPRAZOLAM [Concomitant]

REACTIONS (12)
  - AGITATION [None]
  - ATROPHY [None]
  - BLOOD CREATININE INCREASED [None]
  - BLOOD GLUCOSE INCREASED [None]
  - BLOOD SODIUM DECREASED [None]
  - BLOOD UREA INCREASED [None]
  - CONFUSIONAL STATE [None]
  - ELECTROCARDIOGRAM QT CORRECTED INTERVAL PROLONGED [None]
  - GRAND MAL CONVULSION [None]
  - LOSS OF CONSCIOUSNESS [None]
  - POSTICTAL PARALYSIS [None]
  - POSTICTAL STATE [None]
